FAERS Safety Report 5166707-6 (Version None)
Quarter: 2006Q4

REPORT INFORMATION
  Report Type: 
  Country: None (occurrence: None)
  Receive Date: 20061207
  Receipt Date: 20060615
  Transmission Date: 20070319
  Serious: Yes (Death, Life-Threatening, Hospitalization)
  Sender: FDA-Public Use
  Company Number: GB-BRISTOL-MYERS SQUIBB COMPANY-13413356

PATIENT
  Age: 63 Year
  Sex: Male

DRUGS (14)
  1. CISPLATIN [Suspect]
     Indication: GASTRIC CANCER
     Route: 041
     Dates: start: 20060524, end: 20060524
  2. FLUOROURACIL [Suspect]
     Indication: GASTRIC CANCER
     Route: 041
     Dates: start: 20060524, end: 20060529
  3. METOCLOPRAMIDE [Concomitant]
     Indication: NAUSEA
     Dates: start: 20060101
  4. METFORMIN HCL [Concomitant]
     Indication: DIABETES MELLITUS
     Route: 048
  5. GLIMEPIRIDE [Concomitant]
     Indication: DIABETES MELLITUS
     Route: 048
  6. DOXAZOSIN MESYLATE [Concomitant]
     Indication: HYPERTENSION
     Route: 048
  7. ATORVASTATIN CALCIUM [Concomitant]
     Indication: BLOOD CHOLESTEROL
     Route: 048
  8. VALSARTAN [Concomitant]
     Indication: HYPERTENSION
     Route: 048
  9. ATENOLOL [Concomitant]
     Indication: HYPERTENSION
  10. ORAMORPH SR [Concomitant]
     Indication: PAIN PROPHYLAXIS
     Dates: start: 20060515
  11. OMEPRAZOLE [Concomitant]
     Indication: DYSPEPSIA
  12. HALOPERIDOL [Concomitant]
     Indication: NAUSEA
     Dates: start: 20060515
  13. CYCLIZINE [Concomitant]
     Indication: NAUSEA
     Dates: start: 20060523
  14. MST [Concomitant]
     Indication: PAIN PROPHYLAXIS
     Route: 048
     Dates: start: 20060515

REACTIONS (4)
  - FEBRILE NEUTROPENIA [None]
  - MALIGNANT NEOPLASM PROGRESSION [None]
  - NEUTROPENIC SEPSIS [None]
  - RENAL FAILURE [None]
